FAERS Safety Report 10174325 (Version 1)
Quarter: 2014Q2

REPORT INFORMATION
  Report Type: Spontaneous
  Country: US (occurrence: None)
  Receive Date: 20140514
  Receipt Date: 20140514
  Transmission Date: 20141212
  Serious: No
  Sender: FDA-Public Use
  Company Number: None

PATIENT
  Age: 81 Year
  Sex: Male

DRUGS (11)
  1. IMBRUVICA 140 MG PHARMACYCLICS [Suspect]
     Indication: HODGKIN^S DISEASE
     Route: 048
     Dates: start: 20140411
  2. IRON [Concomitant]
  3. VITAMIN B12 [Concomitant]
  4. PRESERVISION LUTEIN [Concomitant]
  5. PREDNISONE [Concomitant]
  6. LUKERAN [Concomitant]
  7. POTASSIUM CL [Concomitant]
  8. ALLOPURINOL [Concomitant]
  9. CIPRO [Concomitant]
  10. FLUCONAZOLE [Concomitant]
  11. ACYCLOVIR [Concomitant]

REACTIONS (1)
  - Adverse event [None]
